FAERS Safety Report 6330574-5 (Version None)
Quarter: 2009Q3

REPORT INFORMATION
  Report Type: 
  Country: None (occurrence: None)
  Receive Date: 20090827
  Receipt Date: 20090818
  Transmission Date: 20100115
  Serious: Yes (Other)
  Sender: FDA-Public Use
  Company Number: US-NOVOPROD-288422

PATIENT
  Sex: Female
  Weight: 99.773 kg

DRUGS (21)
  1. NOVOLOG [Suspect]
     Indication: INSULIN-REQUIRING TYPE 2 DIABETES MELLITUS
     Dosage: 10 IU, TID
     Route: 058
  2. NOVOLOG [Suspect]
     Dosage: 10 UNK, UNK
     Dates: start: 19830101
  3. LANTUS [Concomitant]
     Indication: INSULIN-REQUIRING TYPE 2 DIABETES MELLITUS
  4. SINGULAIR [Concomitant]
     Indication: DRUG USE FOR UNKNOWN INDICATION
  5. GABAPENTIN [Concomitant]
     Indication: DRUG USE FOR UNKNOWN INDICATION
  6. LISINOPRIL [Concomitant]
     Indication: DRUG USE FOR UNKNOWN INDICATION
     Dosage: 20 MG, UNK
  7. METFORMIN HCL [Concomitant]
     Indication: DRUG USE FOR UNKNOWN INDICATION
     Dosage: 5 MG, BID
  8. CILOSTAZOL [Concomitant]
     Indication: DRUG USE FOR UNKNOWN INDICATION
     Dosage: 100 MG, BID
  9. FUROSEMIDE [Concomitant]
     Indication: DRUG USE FOR UNKNOWN INDICATION
     Dosage: 40 MG, UNK
  10. IRON [Concomitant]
     Indication: DRUG USE FOR UNKNOWN INDICATION
  11. OMEPRAZOLE [Concomitant]
     Indication: GASTROOESOPHAGEAL REFLUX DISEASE
  12. SERTRALINE HYDROCHLORIDE [Concomitant]
     Indication: DRUG USE FOR UNKNOWN INDICATION
     Dosage: 100 MG, UNK
  13. VITAMIN B-12 [Concomitant]
     Indication: DRUG USE FOR UNKNOWN INDICATION
  14. TIZANIDINE HCL [Concomitant]
     Indication: MUSCLE DISORDER
  15. LORAZEPAM [Concomitant]
     Indication: ANXIETY
  16. TRAMADOL HCL [Concomitant]
     Indication: DRUG USE FOR UNKNOWN INDICATION
     Dosage: 50 MG, QID
  17. TYLENOL (CAPLET) [Concomitant]
     Indication: BACK PAIN
     Dosage: UNK, QID
  18. CALCIUM D                          /00944201/ [Concomitant]
     Indication: DRUG USE FOR UNKNOWN INDICATION
     Dosage: 600 UNK, BID
  19. ZYRTEC [Concomitant]
     Indication: HYPERSENSITIVITY
  20. GAS-X                              /00159502/ [Concomitant]
     Indication: FLATULENCE
  21. MUCINEX [Concomitant]
     Indication: RHINORRHOEA

REACTIONS (3)
  - BLOOD GLUCOSE INCREASED [None]
  - DRUG DOSE OMISSION [None]
  - SUICIDAL IDEATION [None]
